FAERS Safety Report 16846821 (Version 3)
Quarter: 2020Q1

REPORT INFORMATION
  Report Type: Spontaneous
  Country: DE (occurrence: DE)
  Receive Date: 20190924
  Receipt Date: 20200325
  Transmission Date: 20200409
  Serious: Yes (Other)
  Sender: FDA-Public Use
  Company Number: PHHY2019DE220701

PATIENT
  Age: 62 Year
  Sex: Male
  Weight: 90 kg

DRUGS (9)
  1. OXYCODONE HYDROCHLORIDE. [Interacting]
     Active Substance: OXYCODONE HYDROCHLORIDE
     Indication: PRODUCT USED FOR UNKNOWN INDICATION
     Dosage: UNK UNK, UNKNOWN FREQ.(STRENGTH 5 UNSPECIFIED UNIT)
     Route: 065
     Dates: start: 20190329
  2. LEUPRONE HEXAL [Concomitant]
     Active Substance: LEUPROLIDE ACETATE
     Indication: PRODUCT USED FOR UNKNOWN INDICATION
     Dosage: UNK
     Route: 065
  3. TRENANTONE [Interacting]
     Active Substance: LEUPROLIDE ACETATE
     Indication: PRODUCT USED FOR UNKNOWN INDICATION
     Dosage: 1 OT, Q3MO
     Route: 065
     Dates: start: 20190329
  4. LEUPRONE HEXAL [Concomitant]
     Active Substance: LEUPROLIDE ACETATE
     Dosage: UNK UNK, UNKNOWN FREQ.
     Route: 065
  5. XGEVA [Concomitant]
     Active Substance: DENOSUMAB
     Indication: PRODUCT USED FOR UNKNOWN INDICATION
     Dosage: 120 MILLIGRAM, MONTHLY
     Route: 058
     Dates: start: 20190403
  6. BICALUTAMIDE. [Suspect]
     Active Substance: BICALUTAMIDE
     Indication: PRODUCT USED FOR UNKNOWN INDICATION
     Dosage: 50 MILLIGRAM, QD
     Route: 065
     Dates: start: 20190329
  7. NOVALGIN (METAMIZOLE SODIUM) [Interacting]
     Active Substance: METAMIZOLE SODIUM
     Indication: PRODUCT USED FOR UNKNOWN INDICATION
     Dosage: UNK UNK, Q8H (THRICE DAILY)
     Route: 065
     Dates: start: 20190329
  8. ETORICOXIB. [Concomitant]
     Active Substance: ETORICOXIB
     Indication: PRODUCT USED FOR UNKNOWN INDICATION
     Dosage: UNK, ONCE DAILY (STRENGTH: 90)
     Route: 065
     Dates: start: 20190329
  9. XTANDI [Interacting]
     Active Substance: ENZALUTAMIDE
     Indication: PRODUCT USED FOR UNKNOWN INDICATION
     Dosage: 160 MG, QD
     Route: 065
     Dates: start: 201903

REACTIONS (7)
  - Drug interaction [Unknown]
  - Skin discolouration [Not Recovered/Not Resolved]
  - Gait disturbance [Not Recovered/Not Resolved]
  - Poor peripheral circulation [Not Recovered/Not Resolved]
  - Formication [Not Recovered/Not Resolved]
  - Paraesthesia [Not Recovered/Not Resolved]
  - Raynaud^s phenomenon [Not Recovered/Not Resolved]

NARRATIVE: CASE EVENT DATE: 2019
